FAERS Safety Report 5508716-0 (Version None)
Quarter: 2007Q4

REPORT INFORMATION
  Report Type: 
  Country: None (occurrence: None)
  Receive Date: 20071105
  Receipt Date: 20071023
  Transmission Date: 20080405
  Serious: Yes (Other)
  Sender: FDA-Public Use
  Company Number: 2007330203

PATIENT
  Age: 23 Year
  Sex: Male

DRUGS (3)
  1. LISTERINE TOOTH DEFENSE (SODIUM FLUORIDE) [Suspect]
     Dosage: 1 CAPFUL, EVERY MORNING, FOR 4 DAYS, ORAL
     Route: 048
     Dates: start: 20070901, end: 20070904
  2. RISPERDAL [Concomitant]
  3. TRILEPTAL [Concomitant]

REACTIONS (12)
  - DENTAL CARIES [None]
  - EATING DISORDER [None]
  - GINGIVAL PAIN [None]
  - GINGIVAL SWELLING [None]
  - GINGIVITIS [None]
  - HYPERSENSITIVITY [None]
  - MASTICATION DISORDER [None]
  - ORAL PAIN [None]
  - PAIN [None]
  - PAIN IN JAW [None]
  - SENSITIVITY OF TEETH [None]
  - TOOTH DISORDER [None]
